FAERS Safety Report 18382644 (Version 3)
Quarter: 2020Q4

REPORT INFORMATION
  Report Type: Report from Study
  Country: US (occurrence: US)
  Receive Date: 20201014
  Receipt Date: 20201229
  Transmission Date: 20210114
  Serious: Yes (Other)
  Sender: FDA-Public Use
  Company Number: NVSC2020US238490

PATIENT
  Age: 4 Year
  Sex: Male
  Weight: 19.5 kg

DRUGS (6)
  1. GSK1120212 [Suspect]
     Active Substance: TRAMETINIB
     Dosage: 12 ML  (0.05 MG/ML ORAL SUSPENSION)
     Route: 048
     Dates: start: 20200825, end: 20200925
  2. FLINTSTONE VITAMINS [Concomitant]
     Indication: PRODUCT USED FOR UNKNOWN INDICATION
     Dosage: UNK
     Route: 065
  3. GSK1120212 [Suspect]
     Active Substance: TRAMETINIB
     Indication: NEUROFIBROMA
     Dosage: 12 ML (0.05 MG/ML ORAL SUSPENSION)
     Route: 048
     Dates: start: 20200725, end: 20200824
  4. GSK1120212 [Suspect]
     Active Substance: TRAMETINIB
     Dosage: 13 ML (0.05 MG/ML ORAL SUSPENSION)
     Route: 048
     Dates: start: 20201025, end: 20201121
  5. GSK1120212 [Suspect]
     Active Substance: TRAMETINIB
     Dosage: 13.5 ML (0.05 MG/ML ORAL SUSPENSION)
     Route: 048
     Dates: start: 20201122
  6. FLUORIDE [Concomitant]
     Active Substance: SODIUM FLUORIDE\STANNOUS FLUORIDE
     Indication: PRODUCT USED FOR UNKNOWN INDICATION
     Dosage: UNK
     Route: 065

REACTIONS (4)
  - Blood alkaline phosphatase increased [Not Recovered/Not Resolved]
  - Blood creatine phosphokinase increased [Not Recovered/Not Resolved]
  - Eczema [Recovered/Resolved]
  - Anaemia [Not Recovered/Not Resolved]

NARRATIVE: CASE EVENT DATE: 20200824
